FAERS Safety Report 4368479-1 (Version None)
Quarter: 2004Q2

REPORT INFORMATION
  Report Type: 
  Country: None (occurrence: None)
  Receive Date: 20040528
  Receipt Date: 20040524
  Transmission Date: 20050107
  Serious: Yes (Hospitalization, Other)
  Sender: FDA-Public Use
  Company Number: GBWYE776524MAY04

PATIENT
  Age: 88 Year
  Sex: Female

DRUGS (9)
  1. LODINE [Suspect]
     Indication: INFLAMMATION
     Dosage: 300 MG, FREQUENCY UNKNOWN, ORAL
     Route: 048
     Dates: start: 20040406, end: 20040422
  2. LEVOTHYROXINE SODIUM [Concomitant]
  3. FOSINOPRIL SODIUM [Concomitant]
  4. FOLIC ACID [Concomitant]
  5. DOXAZOSIN [Concomitant]
  6. DIAZEPAM [Concomitant]
  7. TAMOXIFEN CITRATE [Concomitant]
  8. BUMETANIDE [Concomitant]
  9. CIPROFLOXACIN [Concomitant]

REACTIONS (5)
  - BALANCE DISORDER [None]
  - CYANOSIS [None]
  - DYSKINESIA [None]
  - HYPOTENSION [None]
  - RASH [None]
